FAERS Safety Report 18908760 (Version 1)
Quarter: 2021Q1

REPORT INFORMATION
  Report Type: Spontaneous
  Country: US (occurrence: US)
  Receive Date: 20210218
  Receipt Date: 20210218
  Transmission Date: 20210420
  Serious: No
  Sender: FDA-Public Use
  Company Number: US-SA-2021SA056091

PATIENT
  Sex: Female
  Weight: 61.22 kg

DRUGS (1)
  1. DUPIXENT [Suspect]
     Active Substance: DUPILUMAB
     Dosage: DUPIXENT 300 MG / 2 ML PFS 2^S
     Route: 058
     Dates: start: 20190227

REACTIONS (1)
  - Product dose omission issue [Unknown]
